FAERS Safety Report 18617941 (Version 2)
Quarter: 2021Q2

REPORT INFORMATION
  Report Type: Report from Study
  Country: US (occurrence: US)
  Receive Date: 20201215
  Receipt Date: 20210504
  Transmission Date: 20210717
  Serious: Yes (Other)
  Sender: FDA-Public Use
  Company Number: US-SHIRE-US202014055

PATIENT
  Sex: Female

DRUGS (1)
  1. HUMAN IMMUNOGLOBULIN; HYALURONIDASE [Suspect]
     Active Substance: HUMAN IMMUNOGLOBULIN G\HYALURONIDASE RECOMBINANT HUMAN
     Indication: PRIMARY IMMUNODEFICIENCY SYNDROME
     Dosage: UNK
     Route: 065

REACTIONS (10)
  - Coagulopathy [Unknown]
  - Pain in extremity [Unknown]
  - Catheter site haemorrhage [Unknown]
  - Brain injury [Unknown]
  - Staphylococcal infection [Unknown]
  - Mass [Unknown]
  - Skin discolouration [Unknown]
  - Wrong technique in device usage process [Unknown]
  - Anxiety [Unknown]
  - Carpal tunnel syndrome [Unknown]
